FAERS Safety Report 4313633-8 (Version None)
Quarter: 2004Q1

REPORT INFORMATION
  Report Type: 
  Country: None (occurrence: None)
  Receive Date: 20040305
  Receipt Date: 20040219
  Transmission Date: 20041129
  Serious: Yes (Hospitalization)
  Sender: FDA-Public Use
  Company Number: M04-INT-023

PATIENT
  Age: 70 Year
  Sex: Male
  Weight: 70 kg

DRUGS (9)
  1. INTEGRILIN [Suspect]
     Indication: CORONARY ANGIOPLASTY
     Dosage: 159 MG, INTRAVENOUS BOLUS
     Route: 040
     Dates: start: 20040217, end: 20040218
  2. HEPARIN [Suspect]
     Indication: CORONARY ANGIOPLASTY
     Dosage: VARIABLE, INTRAVENOUS
     Route: 042
     Dates: start: 20040209, end: 20040218
  3. ASPIRIN [Concomitant]
  4. ENALAPRIL MALEATE [Concomitant]
  5. FUROSEMIDE [Concomitant]
  6. GABAPENTIN [Concomitant]
  7. INSULIN [Concomitant]
  8. METOPROLOL [Concomitant]
  9. PROMETHAZINE [Concomitant]

REACTIONS (1)
  - THROMBOCYTOPENIA [None]
